FAERS Safety Report 9641343 (Version 1)
Quarter: 2013Q4

REPORT INFORMATION
  Report Type: Spontaneous
  Country: US (occurrence: None)
  Receive Date: 20131022
  Receipt Date: 20131022
  Transmission Date: 20140711
  Serious: No
  Sender: FDA-Public Use
  Company Number: None

PATIENT
  Age: 36 Year
  Sex: Male
  Weight: 106 kg

DRUGS (1)
  1. DAPTOMYCIN [Suspect]
     Indication: SEPSIS
     Route: 042

REACTIONS (1)
  - Blood creatine phosphokinase abnormal [None]
